FAERS Safety Report 14047266 (Version 1)
Quarter: 2017Q4

REPORT INFORMATION
  Report Type: Spontaneous
  Country: US (occurrence: US)
  Receive Date: 20171005
  Receipt Date: 20171005
  Transmission Date: 20180321
  Serious: No
  Sender: FDA-Public Use
  Company Number: US-INDIVIOR LIMITED-INDV-100096-2017

PATIENT
  Sex: Male

DRUGS (1)
  1. SUBOXONE [Suspect]
     Active Substance: BUPRENORPHINE HYDROCHLORIDE\NALOXONE HYDROCHLORIDE
     Indication: PAIN
     Dosage: 5 TO 6MG , DAILY,  BY CUTTING
     Route: 065
     Dates: end: 20170320

REACTIONS (4)
  - Intentional underdose [Recovered/Resolved]
  - Off label use [Recovered/Resolved]
  - Product preparation error [Recovered/Resolved]
  - Drug dose omission [Unknown]
